FAERS Safety Report 5506762-4 (Version None)
Quarter: 2007Q4

REPORT INFORMATION
  Report Type: 
  Country: None (occurrence: None)
  Receive Date: 20071101
  Receipt Date: 20071022
  Transmission Date: 20080405
  Serious: Yes (Hospitalization)
  Sender: FDA-Public Use
  Company Number: 2007-04736

PATIENT
  Age: 66 Year
  Sex: Female

DRUGS (8)
  1. TRAZODONE HCL [Suspect]
     Indication: INSOMNIA
     Dosage: 50 MG, QHS, ORAL
     Route: 048
     Dates: start: 19870101
  2. LEVAQUIN [Concomitant]
  3. CIPRO [Concomitant]
  4. NEXIUM [Concomitant]
  5. SINGULAIR [Concomitant]
  6. COMBIVENT [Concomitant]
  7. ATIVAN [Concomitant]
  8. CELEXA [Concomitant]

REACTIONS (6)
  - AMNESIA [None]
  - APHASIA [None]
  - CEREBROVASCULAR ACCIDENT [None]
  - CLONIC CONVULSION [None]
  - MOTOR DYSFUNCTION [None]
  - URINARY TRACT INFECTION [None]
